APPROVED DRUG PRODUCT: ZOVIRAX
Active Ingredient: ACYCLOVIR
Strength: 400MG **Federal Register determination that product was not discontinued or withdrawn for safety or effectiveness reasons**
Dosage Form/Route: TABLET;ORAL
Application: N020089 | Product #001
Applicant: PHARMOBEDIENT CONSULTING LLC
Approved: Apr 30, 1991 | RLD: Yes | RS: No | Type: DISCN